FAERS Safety Report 7091292-1 (Version None)
Quarter: 2010Q4

REPORT INFORMATION
  Report Type: 
  Country: None (occurrence: None)
  Receive Date: 20101105
  Receipt Date: 20101105
  Transmission Date: 20110411
  Serious: Yes (Death)
  Sender: FDA-Public Use
  Company Number: None

PATIENT
  Sex: Male
  Weight: 88.6782 kg

DRUGS (3)
  1. INVEGA SUSTENNA [Suspect]
     Indication: SCHIZOPHRENIA
     Dosage: 234MG ONE TIME ONLY IM
     Route: 030
     Dates: start: 20101011, end: 20101011
  2. INVEGA SUSTENNA [Suspect]
     Indication: SCHIZOPHRENIA
     Dosage: 156MG ONE TIME ONLY IM
     Route: 030
     Dates: start: 20101019, end: 20101019
  3. BENZTROPINE MESYLATE [Concomitant]

REACTIONS (2)
  - FALL [None]
  - LOSS OF CONSCIOUSNESS [None]
